FAERS Safety Report 18398673 (Version 1)
Quarter: 2020Q4

REPORT INFORMATION
  Report Type: Spontaneous
  Country: US (occurrence: US)
  Receive Date: 20201019
  Receipt Date: 20201019
  Transmission Date: 20210114
  Serious: Yes (Disabling)
  Sender: FDA-Public Use
  Company Number: None

PATIENT
  Age: 59 Year
  Sex: Female
  Weight: 73.35 kg

DRUGS (11)
  1. GABAPENTIN. [Concomitant]
     Active Substance: GABAPENTIN
  2. SPINAL CORD STIMULATOR (MEDTRONIC) [Concomitant]
  3. PROBIOTIC [Concomitant]
     Active Substance: PROBIOTICS NOS
  4. JARDIANCE [Suspect]
     Active Substance: EMPAGLIFLOZIN
     Dosage: ?          QUANTITY:1 TABLET(S);?
     Route: 048
     Dates: start: 20200101, end: 20201019
  5. GLIPOSIDE [Concomitant]
  6. METFORMIN [Concomitant]
     Active Substance: METFORMIN HYDROCHLORIDE
  7. JANUVIA [Concomitant]
     Active Substance: SITAGLIPTIN PHOSPHATE
  8. DULOXETINE. [Concomitant]
     Active Substance: DULOXETINE
  9. DILITIAZEM [Concomitant]
     Active Substance: DILTIAZEM
  10. JANUVIA [Suspect]
     Active Substance: SITAGLIPTIN PHOSPHATE
  11. GLIPIZIDE XL [Suspect]
     Active Substance: GLIPIZIDE

REACTIONS (4)
  - Arthropathy [None]
  - Gait inability [None]
  - Joint stiffness [None]
  - Meniscus injury [None]

NARRATIVE: CASE EVENT DATE: 20200426
